FAERS Safety Report 6501741-2 (Version None)
Quarter: 2009Q4

REPORT INFORMATION
  Report Type: 
  Country: None (occurrence: None)
  Receive Date: 20091207
  Receipt Date: 20091201
  Transmission Date: 20100525
  Serious: Yes (Hospitalization, Other)
  Sender: FDA-Public Use
  Company Number: 09US005416

PATIENT
  Age: 27 Year
  Sex: Male

DRUGS (2)
  1. RANITIDINE HYDROCHLORIDE [Suspect]
     Indication: ABDOMINAL PAIN UPPER
     Dosage: ORAL
     Route: 048
  2. RANITIDINE HYDROCHLORIDE [Suspect]
     Indication: DYSPEPSIA
     Dosage: ORAL
     Route: 048

REACTIONS (2)
  - CHOLELITHIASIS [None]
  - HEPATITIS [None]
